FAERS Safety Report 6788454-7 (Version None)
Quarter: 2010Q2

REPORT INFORMATION
  Report Type: 
  Country: None (occurrence: None)
  Receive Date: 20100623
  Receipt Date: 20080311
  Transmission Date: 20101027
  Serious: No
  Sender: FDA-Public Use
  Company Number: US-PFIZER INC-2008024393

PATIENT
  Sex: Female
  Weight: 79.09 kg

DRUGS (2)
  1. DEPO-PROVERA SUSPENSION/INJ [Suspect]
     Indication: CONTRACEPTION
     Route: 030
  2. TOPAMAX [Concomitant]
     Indication: MIGRAINE

REACTIONS (2)
  - AMENORRHOEA [None]
  - BREAST TENDERNESS [None]
